FAERS Safety Report 23938587 (Version 2)
Quarter: 2024Q2

REPORT INFORMATION
  Report Type: Spontaneous
  Country: SG (occurrence: None)
  Receive Date: 20240604
  Receipt Date: 20240613
  Transmission Date: 20240716
  Serious: Yes (Other)
  Sender: FDA-Public Use
  Company Number: 2024A123965

PATIENT
  Age: 66 Year
  Sex: Male

DRUGS (3)
  1. GEFITINIB [Suspect]
     Active Substance: GEFITINIB
     Indication: Lung adenocarcinoma
     Route: 048
  2. OSIMERTINIB [Suspect]
     Active Substance: OSIMERTINIB
     Indication: Lung adenocarcinoma
     Route: 048
  3. PEMETREXED [Concomitant]
     Active Substance: PEMETREXED
     Indication: Lung adenocarcinoma

REACTIONS (4)
  - Malignant neoplasm progression [Unknown]
  - Acquired gene mutation [Unknown]
  - Metastases to peritoneum [Unknown]
  - Metastases to lymph nodes [Unknown]
